FAERS Safety Report 8041400 (Version 2)
Quarter: 2013Q2

REPORT INFORMATION
  Report Type: Spontaneous
  Country: US (occurrence: US)
  Receive Date: 20110718
  Receipt Date: 20130522
  Transmission Date: 20140414
  Serious: Yes (Hospitalization, Other)
  Sender: FDA-Public Use
  Company Number: US-ELI_LILLY_AND_COMPANY-US201011000453

PATIENT
  Age: 77 Year
  Sex: Female

DRUGS (13)
  1. FORTEO [Suspect]
     Indication: SENILE OSTEOPOROSIS
     Dosage: 20 UG, DAILY (1/D)
     Dates: start: 201010
  2. FORTEO [Suspect]
     Dosage: 20 UG, DAILY (1/D)
  3. FORTEO [Suspect]
     Dosage: 20 UG, DAILY (1/D)
  4. FORTEO [Suspect]
     Dosage: 20 UG, DAILY (1/D)
  5. FORTEO [Suspect]
     Dosage: 20 UG, QD
     Dates: end: 20110521
  6. WATER PILLS [Concomitant]
  7. CELEBREX [Concomitant]
     Indication: ARTHRITIS
     Dosage: UNK, PRN
  8. CALCIUM [Concomitant]
  9. MULTIVITAMIN [Concomitant]
  10. VITAMIN B12 [Concomitant]
  11. VITAMIN D NOS [Concomitant]
  12. ELESTAT [Concomitant]
     Indication: MULTIPLE ALLERGIES
  13. XALATAN [Concomitant]
     Indication: GLAUCOMA

REACTIONS (18)
  - Hip fracture [Unknown]
  - Fall [Unknown]
  - Tooth disorder [Unknown]
  - Muscle strain [Unknown]
  - Bowel movement irregularity [Unknown]
  - Hypersensitivity [Unknown]
  - Somnolence [Unknown]
  - Fatigue [Unknown]
  - Spider vein [Unknown]
  - Injection site bruising [Recovered/Resolved]
  - Medication error [Recovered/Resolved]
  - Constipation [Unknown]
  - Bone pain [Recovered/Resolved]
  - Myalgia [Recovered/Resolved]
  - Headache [Recovered/Resolved]
  - Injection site pain [Unknown]
  - Malaise [Unknown]
  - Bone disorder [Unknown]
